FAERS Safety Report 5574478-4 (Version None)
Quarter: 2007Q4

REPORT INFORMATION
  Report Type: 
  Country: None (occurrence: None)
  Receive Date: 20071227
  Receipt Date: 20071217
  Transmission Date: 20080405
  Serious: Yes (Death, Other)
  Sender: FDA-Public Use
  Company Number: PL-ROCHE-537759

PATIENT
  Age: 44 Year
  Sex: Female

DRUGS (1)
  1. XELODA [Suspect]
     Indication: COLON CANCER
     Route: 048
     Dates: start: 20071122, end: 20071213

REACTIONS (3)
  - DISEASE PROGRESSION [None]
  - INFECTION [None]
  - NEUTROPENIA [None]
